FAERS Safety Report 19856597 (Version 2)
Quarter: 2021Q4

REPORT INFORMATION
  Report Type: Other
  Country: GR (occurrence: GR)
  Receive Date: 20210920
  Receipt Date: 20211011
  Transmission Date: 20220303
  Serious: Yes (Other)
  Sender: FDA-Public Use
  Company Number: GR-MERCK HEALTHCARE KGAA-9264831

PATIENT
  Age: 37 Year
  Sex: Female

DRUGS (1)
  1. METFORMIN [Suspect]
     Active Substance: METFORMIN HYDROCHLORIDE
     Indication: Type 2 diabetes mellitus

REACTIONS (2)
  - Adrenal insufficiency [Recovering/Resolving]
  - Endometrial hyperplasia [Recovering/Resolving]
